FAERS Safety Report 11712503 (Version 1)
Quarter: 2015Q4

REPORT INFORMATION
  Report Type: Spontaneous
  Country: US (occurrence: US)
  Receive Date: 20151104
  Receipt Date: 20151104
  Transmission Date: 20160304
  Serious: No
  Sender: FDA-Public Use
  Company Number: US-ELI_LILLY_AND_COMPANY-US201103003622

PATIENT
  Sex: Female

DRUGS (4)
  1. TIMOPTIC [Concomitant]
     Active Substance: TIMOLOL MALEATE
  2. FORTEO [Suspect]
     Active Substance: TERIPARATIDE
     Dosage: 20 UG, QD
     Route: 065
     Dates: start: 20110629
  3. FORTEO [Suspect]
     Active Substance: TERIPARATIDE
     Indication: OSTEOPOROSIS
     Dosage: 20 UG, QD
     Dates: start: 201103
  4. ZESTRIL [Concomitant]
     Active Substance: LISINOPRIL

REACTIONS (7)
  - Bone disorder [Unknown]
  - Pharyngeal disorder [Unknown]
  - Dysphagia [Recovered/Resolved]
  - Injection site haemorrhage [Unknown]
  - Oesophageal disorder [Recovered/Resolved]
  - Injection site bruising [Not Recovered/Not Resolved]
  - Drug dose omission [Unknown]
